FAERS Safety Report 7330261-0 (Version None)
Quarter: 2011Q1

REPORT INFORMATION
  Report Type: 
  Country: None (occurrence: None)
  Receive Date: 20110304
  Receipt Date: 20110222
  Transmission Date: 20110831
  Serious: Yes (Other)
  Sender: FDA-Public Use
  Company Number: DE-AMGEN-DEUSP2011010983

PATIENT
  Sex: Female

DRUGS (7)
  1. OMEPRAZOLE [Concomitant]
     Dosage: 20 MG, QD
  2. FOLIC ACID [Concomitant]
     Dosage: 5 MG, WEEKLY
  3. ENBREL [Suspect]
     Indication: PSORIASIS
     Dosage: 25 MG, 2X/WEEK
  4. MTX                                /00113802/ [Suspect]
     Dosage: 15 MG, WEEKLY
  5. IBUPROFEN [Concomitant]
     Dosage: 800 UP TO 3X/DAY WHEN NEEDED
  6. THYRONAJOD [Concomitant]
     Dosage: 100 A?G, QD
  7. PROVAS                             /00641902/ [Concomitant]
     Dosage: 80 MG, QD

REACTIONS (12)
  - SKIN ODOUR ABNORMAL [None]
  - LOWER RESPIRATORY TRACT INFECTION [None]
  - NASOPHARYNGITIS [None]
  - INJECTION SITE URTICARIA [None]
  - OEDEMA PERIPHERAL [None]
  - PAIN [None]
  - MENTAL DISORDER [None]
  - TENDONITIS [None]
  - DIARRHOEA [None]
  - DYSPHONIA [None]
  - HYPERHIDROSIS [None]
  - ARTHRITIS [None]
